FAERS Safety Report 24895920 (Version 1)
Quarter: 2025Q1

REPORT INFORMATION
  Report Type: Spontaneous
  Country: US (occurrence: US)
  Receive Date: 20250128
  Receipt Date: 20250128
  Transmission Date: 20250409
  Serious: No
  Sender: UPSHER SMITH LABORATORIES
  Company Number: US-UPSHER-SMITH LABORATORIES, LLC-2024USL00283

PATIENT
  Age: 20 Year
  Weight: 62.132 kg

DRUGS (1)
  1. ISOTRETINOIN [Suspect]
     Active Substance: ISOTRETINOIN
     Indication: Acne
     Route: 048
     Dates: start: 202401

REACTIONS (2)
  - Mean cell haemoglobin decreased [Unknown]
  - Product monitoring error [Unknown]

NARRATIVE: CASE EVENT DATE: 20240101
